FAERS Safety Report 8893926 (Version 1)
Quarter: 2012Q4

REPORT INFORMATION
  Report Type: 
  Country: US (occurrence: US)
  Receive Date: 20121108
  Receipt Date: 20121108
  Transmission Date: 20130627
  Serious: Yes (Hospitalization, Other)
  Sender: FDA-Public Use
  Company Number: US-PFIZER INC-2012278109

PATIENT
  Age: 22 Year
  Sex: Male
  Weight: 78.91 kg

DRUGS (1)
  1. LYRICA [Suspect]
     Indication: NERVOUS SYSTEM DISORDER
     Dosage: 300 mg, 2x/day (two capsules of 150mg)
     Route: 048
     Dates: start: 2008

REACTIONS (4)
  - Convulsion [Unknown]
  - Epilepsy [Unknown]
  - Drug ineffective [Unknown]
  - Amnesia [Recovering/Resolving]
